FAERS Safety Report 8276597 (Version 2)
Quarter: 2013Q3

REPORT INFORMATION
  Report Type: Report from Study
  Country: US (occurrence: US)
  Receive Date: 20111206
  Receipt Date: 20130725
  Transmission Date: 20140515
  Serious: Yes (Hospitalization)
  Sender: FDA-Public Use
  Company Number: US-BRISTOL-MYERS SQUIBB COMPANY-14346258

PATIENT
  Age: 79 Year
  Sex: Female

DRUGS (9)
  1. IPILIMUMAB [Suspect]
     Indication: MALIGNANT MELANOMA
     Dosage: THERAPY STARTED ON: 24-JUN-2008
     Route: 042
     Dates: start: 20080624, end: 20080826
  2. PREDNISONE [Concomitant]
  3. ZOFRAN [Concomitant]
     Route: 048
     Dates: start: 20080729
  4. SYNTHROID [Concomitant]
  5. PROTONIX [Concomitant]
     Route: 048
     Dates: start: 20080919
  6. NAPROXEN [Concomitant]
     Dates: start: 20080919
  7. VALIUM [Concomitant]
     Dates: start: 20080724
  8. BENADRYL [Concomitant]
     Dates: start: 20080724
  9. MVI [Concomitant]
     Dates: start: 200803

REACTIONS (4)
  - Diarrhoea [Recovered/Resolved]
  - Azotaemia [Recovered/Resolved]
  - Pyrexia [Recovered/Resolved]
  - Hyponatraemia [Recovered/Resolved]
